FAERS Safety Report 8806200 (Version 8)
Quarter: 2014Q3

REPORT INFORMATION
  Report Type: Report from Study
  Country: CA (occurrence: CA)
  Receive Date: 20120925
  Receipt Date: 20140804
  Transmission Date: 20150326
  Serious: Yes (Death, Other)
  Sender: FDA-Public Use
  Company Number: PHHY2012CA082668

PATIENT
  Age: 73 Year
  Sex: Male

DRUGS (4)
  1. ZOMETA [Suspect]
     Active Substance: ZOLEDRONIC ACID
     Indication: PROSTATE CANCER
     Dosage: 4 MG, EVERY 16 WEEKS
     Route: 042
     Dates: start: 20101108
  2. ANTICOAGULANTS [Concomitant]
     Active Substance: UNSPECIFIED INGREDIENT
     Dosage: UNK UKN, UNK
  3. ZOMETA [Suspect]
     Active Substance: ZOLEDRONIC ACID
     Dosage: 4 MG, EVERY 3 MONTHS
     Route: 042
     Dates: end: 20140127
  4. FRAGMIN [Concomitant]
     Active Substance: DALTEPARIN SODIUM
     Dosage: UNK UKN, UNK

REACTIONS (14)
  - Injection site scar [Unknown]
  - Dehydration [Unknown]
  - Asthenia [Unknown]
  - Pain [Unknown]
  - Poor venous access [Unknown]
  - Fatigue [Unknown]
  - Haemorrhage [Unknown]
  - Dry skin [Unknown]
  - Skin turgor decreased [Unknown]
  - Pallor [Unknown]
  - Contusion [Unknown]
  - Confusional state [Unknown]
  - Death [Fatal]
  - Blood pressure increased [Unknown]

NARRATIVE: CASE EVENT DATE: 20140726
